FAERS Safety Report 9011779 (Version 1)
Quarter: 2013Q1

REPORT INFORMATION
  Report Type: Spontaneous
  Country: US (occurrence: US)
  Receive Date: 20130113
  Receipt Date: 20130113
  Transmission Date: 20140127
  Serious: Yes (Congenital Anomaly)
  Sender: FDA-Public Use
  Company Number: US-009507513-1301USA004799

PATIENT
  Sex: 0

DRUGS (7)
  1. SINGULAIR [Suspect]
     Route: 064
  2. LEVOTHYROXINE SODIUM [Suspect]
     Route: 064
  3. AMOXICILLIN [Suspect]
     Route: 064
  4. ALBUTEROL SULFATE [Suspect]
     Route: 064
  5. PREDNISOLONE [Suspect]
     Dosage: 5 MG, QD
     Route: 064
  6. CROMOLYN SODIUM [Suspect]
     Route: 064
  7. REPROTEROL HYDROCHLORIDE [Suspect]
     Route: 064

REACTIONS (2)
  - Haemangioma [Unknown]
  - Foetal exposure during pregnancy [Unknown]
